FAERS Safety Report 11804383 (Version 2)
Quarter: 2017Q4

REPORT INFORMATION
  Report Type: Spontaneous
  Country: US (occurrence: US)
  Receive Date: 20151204
  Receipt Date: 20171115
  Transmission Date: 20180320
  Serious: No
  Sender: FDA-Public Use
  Company Number: US-BAUSCH-BL-2014-010592

PATIENT
  Age: 32 Year
  Sex: Male
  Weight: 65.83 kg

DRUGS (7)
  1. XENAZINE [Suspect]
     Active Substance: TETRABENAZINE
     Indication: HUNTINGTON^S DISEASE
     Route: 048
     Dates: start: 20141114
  2. TRAZODONE [Suspect]
     Active Substance: TRAZODONE HYDROCHLORIDE
     Indication: INITIAL INSOMNIA
     Route: 065
     Dates: start: 201503
  3. XENAZINE [Suspect]
     Active Substance: TETRABENAZINE
     Dosage: 12.5MG, TAKING ONE TABLET ORALLY IN THE MORNING, AND TAKING ? TABLET ORALLY AT NIGHT.
     Route: 048
  4. MELATONIN [Suspect]
     Active Substance: MELATONIN
     Indication: INITIAL INSOMNIA
     Route: 065
  5. XENAZINE [Suspect]
     Active Substance: TETRABENAZINE
     Route: 048
  6. KLONOPIN [Suspect]
     Active Substance: CLONAZEPAM
     Indication: INITIAL INSOMNIA
     Route: 065
  7. ALLEGRA [Suspect]
     Active Substance: FEXOFENADINE HYDROCHLORIDE
     Indication: SEASONAL ALLERGY
     Route: 065

REACTIONS (13)
  - Somnolence [Unknown]
  - Limb injury [Unknown]
  - Apathy [Unknown]
  - Heart rate increased [Unknown]
  - Initial insomnia [Recovered/Resolved]
  - Sedation [Unknown]
  - Skin burning sensation [Unknown]
  - Discomfort [Unknown]
  - Anxiety [Unknown]
  - Agitation [Unknown]
  - Drug administration error [Unknown]
  - Feeling hot [Unknown]
  - Restlessness [Unknown]

NARRATIVE: CASE EVENT DATE: 2014
